FAERS Safety Report 7414166-2 (Version None)
Quarter: 2011Q2

REPORT INFORMATION
  Report Type: 
  Country: None (occurrence: None)
  Receive Date: 20110414
  Receipt Date: 20110411
  Transmission Date: 20111010
  Serious: Yes (Disabling, Other)
  Sender: FDA-Public Use
  Company Number: US-PFIZER INC-2011020793

PATIENT
  Sex: Male

DRUGS (1)
  1. CHANTIX [Suspect]
     Indication: SMOKING CESSATION THERAPY
     Dosage: STARTER PACK; 1 MG
     Dates: start: 20090304, end: 20090601

REACTIONS (22)
  - FALL [None]
  - INSOMNIA [None]
  - PARANOIA [None]
  - DIZZINESS [None]
  - AGGRESSION [None]
  - IRRITABILITY [None]
  - MOOD SWINGS [None]
  - PERSONALITY DISORDER [None]
  - MUSCULOSKELETAL PAIN [None]
  - PSYCHIATRIC SYMPTOM [None]
  - FEAR [None]
  - PANIC ATTACK [None]
  - MANIA [None]
  - DEPRESSION [None]
  - APPETITE DISORDER [None]
  - HALLUCINATION [None]
  - TENDON DISORDER [None]
  - SUICIDAL IDEATION [None]
  - NIGHTMARE [None]
  - DISTURBANCE IN ATTENTION [None]
  - MENTAL STATUS CHANGES [None]
  - ANXIETY [None]
